FAERS Safety Report 6428583-0 (Version None)
Quarter: 2009Q4

REPORT INFORMATION
  Report Type: 
  Country: None (occurrence: None)
  Receive Date: 20091102
  Receipt Date: 20091026
  Transmission Date: 20100525
  Serious: Yes (Other)
  Sender: FDA-Public Use
  Company Number: 09-001687

PATIENT
  Sex: Female

DRUGS (1)
  1. LOESTRIN 24 FE [Suspect]
     Dates: start: 20090101

REACTIONS (5)
  - FEELING HOT [None]
  - HYPOAESTHESIA [None]
  - PAIN IN EXTREMITY [None]
  - POOR QUALITY SLEEP [None]
  - VASODILATATION [None]
